FAERS Safety Report 4381709-5 (Version None)
Quarter: 2004Q2

REPORT INFORMATION
  Report Type: 
  Country: None (occurrence: None)
  Receive Date: 20040615
  Receipt Date: 20040604
  Transmission Date: 20050107
  Serious: Yes (Other)
  Sender: FDA-Public Use
  Company Number: 200410137BSV

PATIENT
  Age: 42 Year
  Sex: Female

DRUGS (2)
  1. AVELOX [Suspect]
     Indication: SINUSITIS
     Dosage: 800 MG, TOTAL DAILY, ORAL
     Route: 048
     Dates: start: 20040111, end: 20040113
  2. ACETAMINOPHEN [Concomitant]

REACTIONS (4)
  - ARTHRALGIA [None]
  - BACK PAIN [None]
  - ERYTHEMA [None]
  - PYREXIA [None]
